FAERS Safety Report 5304363-4 (Version None)
Quarter: 2007Q2

REPORT INFORMATION
  Report Type: 
  Country: None (occurrence: None)
  Receive Date: 20070423
  Receipt Date: 20070413
  Transmission Date: 20071010
  Serious: Yes (Other)
  Sender: FDA-Public Use
  Company Number: JP-ROCHE-488196

PATIENT
  Age: 11 Year
  Sex: Male
  Weight: 46 kg

DRUGS (8)
  1. TAMIFLU [Suspect]
     Route: 048
     Dates: start: 20070309, end: 20070309
  2. TAMIFLU [Suspect]
     Route: 048
     Dates: start: 20070310, end: 20070311
  3. CODEINE PHOSPHATE [Concomitant]
  4. MISCELLANEOUS GASTROINTESTINAL AGENT NOS [Concomitant]
     Dosage: REPORTED AS COMBINED GASTROINTESTINAL AGENTS ().
     Route: 065
  5. COUGHCODE [Concomitant]
     Route: 048
     Dates: start: 20070312, end: 20070312
  6. RANTUDIL [Concomitant]
     Route: 048
     Dates: end: 20070312
  7. LEBENIN [Concomitant]
     Route: 048
     Dates: end: 20070312
  8. STOMILASE [Concomitant]
     Route: 048
     Dates: start: 20070312

REACTIONS (1)
  - MYALGIA [None]
